FAERS Safety Report 18942704 (Version 1)
Quarter: 2021Q1

REPORT INFORMATION
  Report Type: Spontaneous
  Country: US (occurrence: US)
  Receive Date: 20210225
  Receipt Date: 20210225
  Transmission Date: 20210420
  Serious: Yes (Other)
  Sender: FDA-Public Use
  Company Number: US-PFIZER INC-1875062

PATIENT
  Age: 46 Year
  Sex: Male

DRUGS (3)
  1. SUCCINYLCHOLINE CHLORIDE. [Suspect]
     Active Substance: SUCCINYLCHOLINE CHLORIDE
     Indication: ENDOTRACHEAL INTUBATION
     Dosage: 100 MG
     Route: 042
  2. ETOMIDATE. [Concomitant]
     Active Substance: ETOMIDATE
     Indication: ENDOTRACHEAL INTUBATION
     Dosage: 20 MG
     Route: 042
  3. FENTANYL. [Concomitant]
     Active Substance: FENTANYL
     Indication: ENDOTRACHEAL INTUBATION
     Dosage: 50 UG/KG, UNK
     Route: 042

REACTIONS (2)
  - Hyperthermia malignant [Recovered/Resolved with Sequelae]
  - Multi-organ disorder [Recovered/Resolved with Sequelae]
